FAERS Safety Report 12241516 (Version 1)
Quarter: 2016Q2

REPORT INFORMATION
  Report Type: Spontaneous
  Country: US (occurrence: US)
  Receive Date: 20160406
  Receipt Date: 20160406
  Transmission Date: 20160815
  Serious: No
  Sender: FDA-Public Use
  Company Number: US-ASTRAZENECA-2016SE22294

PATIENT
  Age: 21818 Day
  Sex: Female
  Weight: 81.6 kg

DRUGS (4)
  1. MOVANTIK [Suspect]
     Active Substance: NALOXEGOL OXALATE
     Indication: NARCOTIC BOWEL SYNDROME
     Route: 048
     Dates: start: 20160301
  2. MORPHINE SULFATE. [Concomitant]
     Active Substance: MORPHINE SULFATE
  3. SOMA [Concomitant]
     Active Substance: CARISOPRODOL
  4. OXYCODONE WITH ACEPAMENOPHEN [Concomitant]

REACTIONS (5)
  - Abdominal pain [Unknown]
  - Product use issue [Unknown]
  - Malaise [Unknown]
  - Feeling abnormal [Unknown]
  - Diarrhoea [Unknown]

NARRATIVE: CASE EVENT DATE: 20160301
